FAERS Safety Report 11994393 (Version 1)
Quarter: 2016Q1

REPORT INFORMATION
  Report Type: Spontaneous
  Country: US (occurrence: US)
  Receive Date: 20160203
  Receipt Date: 20160203
  Transmission Date: 20160526
  Serious: No
  Sender: FDA-Public Use
  Company Number: US-UCBSA-2015031957

PATIENT
  Sex: Female
  Weight: 76 kg

DRUGS (8)
  1. MAGNESIUM OXIDE. [Concomitant]
     Active Substance: MAGNESIUM OXIDE
     Indication: PRODUCT USED FOR UNKNOWN INDICATION
     Dosage: 1 TAB IN THE AM AND 1/2 TAB IN PM
  2. KEPPRA [Suspect]
     Active Substance: LEVETIRACETAM
     Indication: SEIZURE
     Dosage: 1000 MG, 2X/DAY (BID)
     Route: 048
  3. SINUS RINSE [Concomitant]
     Indication: PRODUCT USED FOR UNKNOWN INDICATION
     Route: 045
  4. ZOFRAN [Concomitant]
     Active Substance: ONDANSETRON HYDROCHLORIDE
     Indication: NAUSEA
     Dosage: 8 MG EVERY 8 HOURS, AS NEEDED (PRN)
     Route: 048
  5. ACETAMINOPHEN AND CODEINE [Concomitant]
     Active Substance: ACETAMINOPHEN\CODEINE PHOSPHATE
     Indication: HEADACHE
     Dosage: 1 TABLET EVERY 4 HOURS, AS NEEDED (PRN)
     Route: 048
  6. HEPARIN FLUSH [Concomitant]
     Indication: PRODUCT USED FOR UNKNOWN INDICATION
     Dosage: 300 UNITS
     Dates: start: 20150921, end: 20150921
  7. BIOTENE DRY MOUTH [Concomitant]
     Indication: PRODUCT USED FOR UNKNOWN INDICATION
     Dosage: UNK, 2X/DAY (BID)
     Route: 048
  8. EMLA [Concomitant]
     Active Substance: LIDOCAINE\PRILOCAINE
     Indication: PRODUCT USED FOR UNKNOWN INDICATION
     Dosage: APPLY TO PORT SITE 30 MIN PRIOR TO ACCESS
     Route: 061
     Dates: start: 20150921, end: 20150921

REACTIONS (1)
  - Headache [Recovering/Resolving]
